FAERS Safety Report 6590462-6 (Version None)
Quarter: 2010Q1

REPORT INFORMATION
  Report Type: 
  Country: None (occurrence: None)
  Receive Date: 20100219
  Receipt Date: 20100209
  Transmission Date: 20100710
  Serious: Yes (Other)
  Sender: FDA-Public Use
  Company Number: PT-ROCHE-684911

PATIENT
  Age: 68 Year
  Sex: Female

DRUGS (1)
  1. INTERFERON ALFA [Suspect]
     Indication: RENAL CELL CARCINOMA
     Route: 065
     Dates: start: 20091001, end: 20091201

REACTIONS (2)
  - DISEASE PROGRESSION [None]
  - METASTASIS [None]
